FAERS Safety Report 4309487-6 (Version None)
Quarter: 2004Q1

REPORT INFORMATION
  Report Type: 
  Country: None (occurrence: None)
  Receive Date: 20040227
  Receipt Date: 20040213
  Transmission Date: 20041129
  Serious: Yes (Other)
  Sender: FDA-Public Use
  Company Number: PHBS2004BR02148

PATIENT
  Age: 62 Year
  Sex: Male
  Weight: 99 kg

DRUGS (5)
  1. TEGRETOL [Suspect]
     Indication: FORMICATION
     Dosage: 100 MG/DAY
     Route: 048
     Dates: start: 20040109, end: 20040114
  2. TEGRETOL [Suspect]
     Dosage: 200 MG/DAY
     Route: 048
     Dates: start: 20040115, end: 20040128
  3. DIABINESE [Concomitant]
     Indication: DIABETES MELLITUS
     Dosage: .5 TABLET, BID
     Route: 048
  4. ENALAPRIL MALEATE [Concomitant]
     Dosage: 1 TABLET, BID
     Route: 048
     Dates: start: 20020101
  5. SIMVASTATIN [Concomitant]
     Indication: HYPERCHOLESTEROLAEMIA
     Dosage: 15 MG/DAY
     Route: 048

REACTIONS (2)
  - AGEUSIA [None]
  - FALL [None]
